FAERS Safety Report 10370779 (Version 1)
Quarter: 2014Q3

REPORT INFORMATION
  Report Type: Spontaneous
  Country: BR (occurrence: BR)
  Receive Date: 20140808
  Receipt Date: 20140808
  Transmission Date: 20150326
  Serious: Yes (Other)
  Sender: FDA-Public Use
  Company Number: BR-BAYER-2014-118529

PATIENT
  Sex: Female

DRUGS (1)
  1. YAZ [Suspect]
     Active Substance: DROSPIRENONE\ETHINYL ESTRADIOL
     Indication: POLYCYSTIC OVARIES
     Dosage: 1 DF, QD
     Route: 048
     Dates: end: 201308

REACTIONS (23)
  - Hypothalamo-pituitary disorder [Not Recovered/Not Resolved]
  - Thrombosis [Not Recovered/Not Resolved]
  - Eye pain [Recovering/Resolving]
  - Back pain [Recovering/Resolving]
  - Paraesthesia [Recovering/Resolving]
  - Acne [Not Recovered/Not Resolved]
  - Feeling abnormal [Recovering/Resolving]
  - Eye disorder [Recovering/Resolving]
  - Nausea [Recovering/Resolving]
  - Headache [Recovered/Resolved]
  - Skin disorder [Not Recovered/Not Resolved]
  - Coordination abnormal [Recovering/Resolving]
  - Asthenia [Recovering/Resolving]
  - Heart rate decreased [Recovering/Resolving]
  - Blood pressure decreased [Recovering/Resolving]
  - Amenorrhoea [None]
  - Off label use [None]
  - Cardiovascular disorder [Recovering/Resolving]
  - Menstruation delayed [None]
  - Bone pain [Recovering/Resolving]
  - Eye allergy [Recovering/Resolving]
  - Dizziness [Not Recovered/Not Resolved]
  - Headache [Not Recovered/Not Resolved]

NARRATIVE: CASE EVENT DATE: 2013
